FAERS Safety Report 14681382 (Version 1)
Quarter: 2018Q1

REPORT INFORMATION
  Report Type: Spontaneous
  Country: US (occurrence: US)
  Receive Date: 20180326
  Receipt Date: 20180326
  Transmission Date: 20180509
  Serious: No
  Sender: FDA-Public Use
  Company Number: US-AMNEAL PHARMACEUTICALS-2017AMN00489

PATIENT
  Sex: Female

DRUGS (2)
  1. DEPAKOTE [Concomitant]
     Active Substance: DIVALPROEX SODIUM
  2. SULFAMETHOXAZOLE AND TRIMETHOPRIM [Suspect]
     Active Substance: SULFAMETHOXAZOLE\TRIMETHOPRIM
     Dosage: UNK
     Dates: start: 201609

REACTIONS (8)
  - Neuralgia [Unknown]
  - Arthralgia [Unknown]
  - Menopause [Unknown]
  - Hypoaesthesia [Unknown]
  - Skin irritation [Unknown]
  - Drug hypersensitivity [Unknown]
  - Neuropathy peripheral [Unknown]
  - Decreased appetite [Unknown]
